FAERS Safety Report 4329016-0 (Version None)
Quarter: 2004Q1

REPORT INFORMATION
  Report Type: 
  Country: None (occurrence: None)
  Receive Date: 20040331
  Receipt Date: 20040331
  Transmission Date: 20041129
  Serious: No
  Sender: FDA-Public Use
  Company Number: None

PATIENT
  Age: 30 Year
  Sex: Female
  Weight: 89 kg

DRUGS (1)
  1. PREDNISONE 50MG TAB [Suspect]
     Indication: CHEMOTHERAPY
     Dosage: 10 MG DAILY 14D. ORAL
     Route: 048
     Dates: start: 20030826, end: 20040308

REACTIONS (1)
  - ASEPTIC NECROSIS BONE [None]
